FAERS Safety Report 17288601 (Version 1)
Quarter: 2020Q1

REPORT INFORMATION
  Report Type: Spontaneous
  Country: US (occurrence: US)
  Receive Date: 20200120
  Receipt Date: 20200120
  Transmission Date: 20200409
  Serious: No
  Sender: FDA-Public Use
  Company Number: US-RECRO GAINESVILLE LLC-REPH-2019-000105

PATIENT
  Sex: Female

DRUGS (1)
  1. VERELAN PM [Suspect]
     Active Substance: VERAPAMIL HYDROCHLORIDE
     Dosage: 300 MILLIGRAM, UNK
     Route: 048

REACTIONS (1)
  - Extrasystoles [Unknown]
